FAERS Safety Report 12984442 (Version 2)
Quarter: 2016Q4

REPORT INFORMATION
  Report Type: Spontaneous
  Country: FR (occurrence: FR)
  Receive Date: 20161129
  Receipt Date: 20161206
  Transmission Date: 20170207
  Serious: Yes (Death, Life-Threatening, Hospitalization)
  Sender: FDA-Public Use
  Company Number: FR-DSJP-DSE-2016-139401

PATIENT

DRUGS (4)
  1. SEVIKAR [Suspect]
     Active Substance: AMLODIPINE BESYLATE\OLMESARTAN MEDOXOMIL
     Indication: COMPLETED SUICIDE
     Dosage: 129 DF (5.16 G/1.29 G), SINGLE
     Route: 048
  2. LYSANXIA [Suspect]
     Active Substance: PRAZEPAM
     Indication: COMPLETED SUICIDE
     Dosage: 420 MG, SINGLE
     Route: 048
  3. SEROPLEX [Suspect]
     Active Substance: ESCITALOPRAM OXALATE
     Indication: COMPLETED SUICIDE
     Dosage: 280 MG, SINGLE
     Route: 048
  4. ATARAX [Suspect]
     Active Substance: HYDROXYZINE\HYDROXYZINE HYDROCHLORIDE
     Indication: COMPLETED SUICIDE
     Dosage: 700 MG, SINGLE
     Route: 048

REACTIONS (5)
  - Intestinal ischaemia [Unknown]
  - Bezoar [Fatal]
  - Toxicity to various agents [Fatal]
  - Skin necrosis [Unknown]
  - Completed suicide [Fatal]
